FAERS Safety Report 23535585 (Version 1)
Quarter: 2024Q1

REPORT INFORMATION
  Report Type: Report from Study
  Country: US (occurrence: US)
  Receive Date: 20240218
  Receipt Date: 20240218
  Transmission Date: 20240410
  Serious: Yes (Other)
  Sender: FDA-Public Use
  Company Number: US-ABBVIE-5639158

PATIENT
  Age: 63 Year
  Sex: Male

DRUGS (6)
  1. SKYRIZI [Suspect]
     Active Substance: RISANKIZUMAB-RZAA
     Indication: Psoriasis
     Route: 058
     Dates: start: 20230601
  2. SKYRIZI [Suspect]
     Active Substance: RISANKIZUMAB-RZAA
     Route: 058
  3. LISINOPRIL [Concomitant]
     Active Substance: LISINOPRIL
     Indication: Hypertension
     Dates: start: 20140214
  4. TRAMADOL [Concomitant]
     Active Substance: TRAMADOL\TRAMADOL HYDROCHLORIDE
     Indication: Pain management
     Dates: start: 20220212
  5. ATENOLOL AND CHLORTHALIDONE [Concomitant]
     Active Substance: ATENOLOL\CHLORTHALIDONE
     Indication: Hypertension
     Dates: start: 20140214
  6. DICLOFENAC [Concomitant]
     Active Substance: DICLOFENAC
     Indication: Inflammation
     Dates: start: 20140214

REACTIONS (5)
  - Knee arthroplasty [Recovered/Resolved]
  - Psoriasis [Recovered/Resolved]
  - Rash [Not Recovered/Not Resolved]
  - Therapeutic response shortened [Unknown]
  - Pruritus [Unknown]

NARRATIVE: CASE EVENT DATE: 20231108
